FAERS Safety Report 7447034-0 (Version None)
Quarter: 2011Q2

REPORT INFORMATION
  Report Type: 
  Country: None (occurrence: None)
  Receive Date: 20110419
  Receipt Date: 20110404
  Transmission Date: 20111010
  Serious: Yes (Hospitalization, Other)
  Sender: FDA-Public Use
  Company Number: CIP11000506

PATIENT
  Age: 75 Year
  Sex: Female
  Weight: 75.9 kg

DRUGS (10)
  1. NEXIUM [Concomitant]
  2. HYZAAR /01284801/ (HYDROCHLOROTHIAZIDE, LOSARTAN POTASSIUM) [Concomitant]
  3. ALL OTHER THERAPEUTIC PRODUCTS [Concomitant]
  4. BONIVA [Suspect]
     Dosage: 150 MG, ORAL
     Route: 048
     Dates: start: 20051102, end: 20090622
  5. ACTONEL [Suspect]
     Dosage: 35 MG, ORAL
     Route: 048
     Dates: start: 20041029, end: 20050324
  6. CALTRATE /00108001/ (CALCIUM CARBONATE) [Concomitant]
  7. ZOCOR [Concomitant]
  8. AMLODIPINE BESYLATE [Concomitant]
  9. ASPIRIN [Concomitant]
  10. FOSAMAX [Suspect]
     Dosage: 70 MG WEEKLY, ORAL
     Route: 048
     Dates: start: 20010505, end: 20040623

REACTIONS (4)
  - TENDERNESS [None]
  - STRESS FRACTURE [None]
  - PAIN IN EXTREMITY [None]
  - FEMUR FRACTURE [None]
